FAERS Safety Report 7353085-7 (Version None)
Quarter: 2011Q1

REPORT INFORMATION
  Report Type: 
  Country: None (occurrence: None)
  Receive Date: 20110315
  Receipt Date: 20110307
  Transmission Date: 20110831
  Serious: Yes (Other)
  Sender: FDA-Public Use
  Company Number: US-ROCHE-764857

PATIENT

DRUGS (1)
  1. BEVACIZUMAB [Suspect]
     Dosage: INFUSION OVER 30 TO 90 MINUTES
     Route: 042

REACTIONS (10)
  - NAUSEA [None]
  - PERITONITIS [None]
  - DEEP VEIN THROMBOSIS [None]
  - DEHYDRATION [None]
  - PULMONARY EMBOLISM [None]
  - FATIGUE [None]
  - HYPERTENSION [None]
  - HYPERURICAEMIA [None]
  - GASTROINTESTINAL HAEMORRHAGE [None]
  - VOMITING [None]
